FAERS Safety Report 6444544-X (Version None)
Quarter: 2009Q4

REPORT INFORMATION
  Report Type: 
  Country: None (occurrence: None)
  Receive Date: 20091118
  Receipt Date: 20090723
  Transmission Date: 20100525
  Serious: No
  Sender: FDA-Public Use
  Company Number: A0798453A

PATIENT
  Age: 70 Year
  Sex: Male

DRUGS (3)
  1. COREG CR [Suspect]
     Indication: HYPERTENSION
     Dosage: 20MG PER DAY
     Route: 048
     Dates: start: 20090626
  2. WATER PILL [Concomitant]
  3. FLOMAX [Concomitant]

REACTIONS (1)
  - DRUG INEFFECTIVE [None]
